FAERS Safety Report 7408899-1 (Version None)
Quarter: 2011Q2

REPORT INFORMATION
  Report Type: 
  Country: None (occurrence: None)
  Receive Date: 20110412
  Receipt Date: 20110406
  Transmission Date: 20111010
  Serious: Yes (Other)
  Sender: FDA-Public Use
  Company Number: ES-SP-2011-02074

PATIENT
  Age: 76 Year
  Sex: Male

DRUGS (3)
  1. ATROVENT [Concomitant]
     Route: 050
  2. SERETIDE [Concomitant]
     Dosage: 25/125 MCG INHALATION SOL'N BID
  3. IMMUCYST [Suspect]
     Indication: BLADDER CANCER STAGE 0, WITH CANCER IN SITU
     Route: 043
     Dates: start: 20100930, end: 20100930

REACTIONS (2)
  - PAROTID GLAND ENLARGEMENT [None]
  - PYREXIA [None]
